FAERS Safety Report 23976958 (Version 2)
Quarter: 2024Q2

REPORT INFORMATION
  Report Type: Report from Study
  Country: US (occurrence: US)
  Receive Date: 20240614
  Receipt Date: 20240621
  Transmission Date: 20240715
  Serious: Yes (Other)
  Sender: FDA-Public Use
  Company Number: US-SUN PHARMACEUTICAL INDUSTRIES LTD-2024R1-451485

PATIENT
  Sex: Female

DRUGS (10)
  1. DOXORUBICIN [Suspect]
     Active Substance: DOXORUBICIN
     Indication: Triple negative breast cancer
     Dosage: UNK
     Route: 065
  2. DOXORUBICIN [Suspect]
     Active Substance: DOXORUBICIN
     Indication: Invasive lobular breast carcinoma
  3. PACLITAXEL [Suspect]
     Active Substance: PACLITAXEL
     Indication: Triple negative breast cancer
     Dosage: UNK
     Route: 065
  4. PACLITAXEL [Suspect]
     Active Substance: PACLITAXEL
     Indication: Invasive lobular breast carcinoma
  5. CYCLOPHOSPHAMIDE [Suspect]
     Active Substance: CYCLOPHOSPHAMIDE
     Indication: Invasive lobular breast carcinoma
     Dosage: UNK
     Route: 065
  6. CYCLOPHOSPHAMIDE [Suspect]
     Active Substance: CYCLOPHOSPHAMIDE
     Indication: Triple negative breast cancer
  7. DOSTARLIMAB [Suspect]
     Active Substance: DOSTARLIMAB
     Indication: Triple negative breast cancer
     Dosage: UNK
     Route: 065
  8. DOSTARLIMAB [Suspect]
     Active Substance: DOSTARLIMAB
     Indication: Invasive lobular breast carcinoma
  9. ENCEQUIDAR [Suspect]
     Active Substance: ENCEQUIDAR
     Indication: Triple negative breast cancer
     Dosage: UNK
     Route: 065
  10. ENCEQUIDAR [Suspect]
     Active Substance: ENCEQUIDAR
     Indication: Invasive lobular breast carcinoma

REACTIONS (2)
  - Neoplasm progression [Unknown]
  - Metastases to skin [Unknown]
